FAERS Safety Report 8956639 (Version 1)
Quarter: 2012Q4

REPORT INFORMATION
  Report Type: 
  Country: JP (occurrence: JP)
  Receive Date: 20121210
  Receipt Date: 20121210
  Transmission Date: 20130627
  Serious: Yes (Hospitalization)
  Sender: FDA-Public Use
  Company Number: PHHY2012JP112784

PATIENT
  Age: 85 Year
  Sex: Male

DRUGS (1)
  1. RIVASTIGMIN [Suspect]
     Indication: DEMENTIA ALZHEIMER^S TYPE
     Dosage: 13.5 mg, Daily
     Route: 062

REACTIONS (2)
  - Lumbar vertebral fracture [Unknown]
  - Fall [Unknown]
